FAERS Safety Report 7073218-X (Version None)
Quarter: 2010Q4

REPORT INFORMATION
  Report Type: 
  Country: None (occurrence: None)
  Receive Date: 20101028
  Receipt Date: 20101028
  Transmission Date: 20110411
  Serious: Yes (Other)
  Sender: FDA-Public Use
  Company Number: None

PATIENT
  Age: 50 Year
  Sex: Female
  Weight: 54.4316 kg

DRUGS (2)
  1. SAVELLA [Suspect]
     Indication: FIBROMYALGIA
     Dosage: 12.5 MG TABLET 2 A DAY
     Dates: start: 20101020, end: 20101022
  2. SAVELLA [Suspect]
     Indication: FIBROMYALGIA
     Dosage: 25 MG TABLET 2 A DAY
     Dates: start: 20101023, end: 20101024

REACTIONS (4)
  - AGITATION [None]
  - NAUSEA [None]
  - NERVOUSNESS [None]
  - PRURITUS [None]
